FAERS Safety Report 13401659 (Version 2)
Quarter: 2017Q4

REPORT INFORMATION
  Report Type: Spontaneous
  Country: US (occurrence: US)
  Receive Date: 20170404
  Receipt Date: 20171004
  Transmission Date: 20180320
  Serious: Yes (Other)
  Sender: FDA-Public Use
  Company Number: US-JNJFOC-20170401606

PATIENT
  Age: 57 Year
  Sex: Female

DRUGS (2)
  1. LEVAQUIN [Suspect]
     Active Substance: LEVOFLOXACIN
     Indication: SINUS CONGESTION
     Route: 048
     Dates: start: 200612
  2. LEVAQUIN [Suspect]
     Active Substance: LEVOFLOXACIN
     Indication: SINUS CONGESTION
     Route: 048
     Dates: start: 201511

REACTIONS (2)
  - Aortic aneurysm [Unknown]
  - Aortic dissection [Unknown]

NARRATIVE: CASE EVENT DATE: 20130911
